FAERS Safety Report 24597476 (Version 1)
Quarter: 2024Q4

REPORT INFORMATION
  Report Type: Spontaneous
  Country: US (occurrence: US)
  Receive Date: 20241110
  Receipt Date: 20241110
  Transmission Date: 20250115
  Serious: No
  Sender: SANOFI AVENTIS
  Company Number: US-SA-2024SA311731

PATIENT
  Sex: Female
  Weight: 45.45 kg

DRUGS (7)
  1. DUPIXENT [Suspect]
     Active Substance: DUPILUMAB
     Indication: Dermatitis atopic
     Dosage: 300 MG, QOW
     Route: 058
  2. PREDNISONE [Concomitant]
     Active Substance: PREDNISONE
     Route: 065
  3. BENADRYL ALLERGY [Concomitant]
     Active Substance: DIPHENHYDRAMINE HYDROCHLORIDE
  4. ARTIFICIAL TEARS [CARMELLOSE SODIUM] [Concomitant]
  5. ERYTHROMYCIN [Concomitant]
     Active Substance: ERYTHROMYCIN
  6. FAMOTIDINE [Concomitant]
     Active Substance: FAMOTIDINE
  7. AMOXICILLIN\CLAVULANATE POTASSIUM [Concomitant]
     Active Substance: AMOXICILLIN\CLAVULANATE POTASSIUM
     Route: 065

REACTIONS (2)
  - Urticaria [Unknown]
  - Rash [Unknown]
